FAERS Safety Report 15307866 (Version 1)
Quarter: 2018Q4

REPORT INFORMATION
  Report Type: Spontaneous
  Country: US (occurrence: US)
  Receive Date: 20180822
  Receipt Date: 20180822
  Transmission Date: 20190204
  Serious: No
  Sender: FDA-Public Use
  Company Number: US-BECTON DICKINSON-2018BDN00140

PATIENT
  Sex: Female

DRUGS (2)
  1. CHLORAPREP WITH TINT [Suspect]
     Active Substance: CHLORHEXIDINE GLUCONATE\ISOPROPYL ALCOHOL
     Indication: INFECTION PROPHYLAXIS
     Dosage: UNK
     Route: 061
     Dates: start: 20180424, end: 20180424
  2. AVEENO MOISTURIZING BODY WASH [Suspect]
     Active Substance: COSMETICS
     Dosage: UNK
     Route: 061
     Dates: start: 20180424

REACTIONS (3)
  - Chemical burn of skin [Not Recovered/Not Resolved]
  - Administration related reaction [Not Recovered/Not Resolved]
  - Drug interaction [Not Recovered/Not Resolved]

NARRATIVE: CASE EVENT DATE: 20180424
